FAERS Safety Report 4796430-9 (Version None)
Quarter: 2005Q4

REPORT INFORMATION
  Report Type: 
  Country: None (occurrence: None)
  Receive Date: 20051011
  Receipt Date: 20040819
  Transmission Date: 20060501
  Serious: Yes (Hospitalization)
  Sender: FDA-Public Use
  Company Number: 2004-08-1397

PATIENT
  Age: 54 Year
  Sex: Female
  Weight: 78.9259 kg

DRUGS (2)
  1. TEMODAR [Suspect]
     Indication: NEOPLASM MALIGNANT
     Dosage: 135 MG QD ORAL
     Route: 048
     Dates: start: 20040712, end: 20040903
  2. TEMODAR [Suspect]
     Indication: NERVOUS SYSTEM DISORDER
     Dosage: 135 MG QD ORAL
     Route: 048
     Dates: start: 20040712, end: 20040903

REACTIONS (3)
  - BLOOD ALKALINE PHOSPHATASE INCREASED [None]
  - PYREXIA [None]
  - WHITE BLOOD CELL COUNT DECREASED [None]
